FAERS Safety Report 5424217-2 (Version None)
Quarter: 2007Q3

REPORT INFORMATION
  Report Type: 
  Country: None (occurrence: None)
  Receive Date: 20070822
  Receipt Date: 20070810
  Transmission Date: 20080115
  Serious: Yes (Hospitalization)
  Sender: FDA-Public Use
  Company Number: 2007S1007563

PATIENT
  Age: 32 Year
  Sex: Male

DRUGS (2)
  1. PHENYTOIN SODIUM [Suspect]
     Indication: EPILEPSY
     Dosage: 100 MG; 3 TIMES A DAY; ORAL
     Route: 048
  2. INSULIN [Concomitant]

REACTIONS (17)
  - BLOOD GLUCOSE INCREASED [None]
  - BLOOD IMMUNOGLOBULIN A DECREASED [None]
  - BLOOD IMMUNOGLOBULIN G DECREASED [None]
  - BLOOD IMMUNOGLOBULIN M DECREASED [None]
  - CYTOLYTIC HEPATITIS [None]
  - DIARRHOEA [None]
  - DRUG INTOLERANCE [None]
  - GASTROINTESTINAL DISORDER [None]
  - HYPOGAMMAGLOBULINAEMIA [None]
  - LYMPHOCYTE COUNT DECREASED [None]
  - NEUTROPENIA [None]
  - PYREXIA [None]
  - RHINORRHOEA [None]
  - SELECTIVE IGA IMMUNODEFICIENCY [None]
  - SINUSITIS [None]
  - TRACHEOBRONCHITIS [None]
  - WEIGHT DECREASED [None]
